FAERS Safety Report 15188465 (Version 1)
Quarter: 2018Q3

REPORT INFORMATION
  Report Type: Spontaneous
  Country: US (occurrence: US)
  Receive Date: 20180625
  Receipt Date: 20180625
  Transmission Date: 20181010
  Serious: Yes (Other)
  Sender: FDA-Public Use
  Company Number: None

PATIENT
  Age: 73 Year
  Sex: Female
  Weight: 69.4 kg

DRUGS (11)
  1. GARLIC. [Concomitant]
     Active Substance: GARLIC
  2. CALCIUM [Concomitant]
     Active Substance: CALCIUM
  3. IBUPROFEN. [Suspect]
     Active Substance: IBUPROFEN
     Dosage: ?          QUANTITY:15 DF DOSAGE FORM;OTHER FREQUENCY:6?8 HRS PRN;?
     Route: 048
     Dates: start: 20180112
  4. HYDROCODONE BITARTRATE AND ACETAMINOPHEN [Suspect]
     Active Substance: ACETAMINOPHEN\HYDROCODONE BITARTRATE
     Dosage: ?          QUANTITY:20 DF DOSAGE FORM;OTHER FREQUENCY:4?6 HRS PRN;?
     Route: 048
     Dates: start: 20180112
  5. FISH OIL [Concomitant]
     Active Substance: FISH OIL
  6. MUL VITAMINS [Concomitant]
  7. METHYLPREDNISOLONE. [Suspect]
     Active Substance: METHYLPREDNISOLONE
     Route: 048
     Dates: start: 20180112
  8. Q10 [Concomitant]
  9. CLINDAMYCIN HCL [Suspect]
     Active Substance: CLINDAMYCIN HYDROCHLORIDE
     Indication: TOOTH EXTRACTION
     Dosage: ?          QUANTITY:40 DF DOSAGE FORM;?
     Route: 048
     Dates: start: 20180112, end: 20180124
  10. VITAMIN D3 [Concomitant]
     Active Substance: CHOLECALCIFEROL
  11. BAYER LOW DOSAGE BABY ASPIRIN [Concomitant]

REACTIONS (5)
  - Feeding disorder [None]
  - Abdominal pain upper [None]
  - Vomiting [None]
  - Asthenia [None]
  - Constipation [None]

NARRATIVE: CASE EVENT DATE: 20180112
